FAERS Safety Report 8213201-1 (Version None)
Quarter: 2012Q1

REPORT INFORMATION
  Report Type: 
  Country: None (occurrence: None)
  Receive Date: 20120315
  Receipt Date: 20120309
  Transmission Date: 20120608
  Serious: Yes (Other)
  Sender: FDA-Public Use
  Company Number: BE-ABBOTT-10P-013-0639684-00

PATIENT
  Age: 46 Year
  Sex: Male
  Weight: 84 kg

DRUGS (3)
  1. HUMIRA [Suspect]
     Indication: PSORIASIS
     Route: 058
     Dates: start: 20090530
  2. IRBESARTAN [Concomitant]
     Indication: HYPERTENSION
     Route: 048
  3. DOVOBET [Concomitant]
     Indication: PRODUCT USED FOR UNKNOWN INDICATION
     Dosage: BETAMETHASON 0,5MG + CALCIPOTRIOL 50MCG

REACTIONS (7)
  - DYSPNOEA [None]
  - PRURITUS [None]
  - CARDIAC FAILURE [None]
  - HYPERTENSION [None]
  - SKIN REACTION [None]
  - ADVERSE DRUG REACTION [None]
  - CARDIOMYOPATHY [None]
